FAERS Safety Report 18675241 (Version 2)
Quarter: 2021Q1

REPORT INFORMATION
  Report Type: Report from Study
  Country: US (occurrence: US)
  Receive Date: 20201229
  Receipt Date: 20210127
  Transmission Date: 20210419
  Serious: Yes (Death)
  Sender: FDA-Public Use
  Company Number: US-ROCHE-2741111

PATIENT
  Age: 79 Year
  Sex: Male
  Weight: 79 kg

DRUGS (20)
  1. LIDOCAINE. [Concomitant]
     Active Substance: LIDOCAINE
  2. BACTRIM [Concomitant]
     Active Substance: SULFAMETHOXAZOLE\TRIMETHOPRIM
  3. VALSARTAN. [Concomitant]
     Active Substance: VALSARTAN
  4. DRAMAMINE [Concomitant]
     Active Substance: DIMENHYDRINATE
  5. ATEZOLIZUMAB. [Suspect]
     Active Substance: ATEZOLIZUMAB
     Indication: HORMONE-REFRACTORY PROSTATE CANCER
     Dosage: 27/OCT/2020, RECEIVED MOST RECENT DOSE
     Route: 042
     Dates: start: 20180423
  6. ATEZOLIZUMAB. [Suspect]
     Active Substance: ATEZOLIZUMAB
     Indication: RENAL CELL CARCINOMA
  7. CABOZANTINIB [Suspect]
     Active Substance: CABOZANTINIB
     Indication: RENAL CELL CARCINOMA
  8. INSULIN LISPRO [Concomitant]
     Active Substance: INSULIN LISPRO
  9. TAMSULOSIN [Concomitant]
     Active Substance: TAMSULOSIN
  10. LORATADINE. [Concomitant]
     Active Substance: LORATADINE
  11. FLONASE [Concomitant]
     Active Substance: FLUTICASONE PROPIONATE
  12. IMODIUM [Concomitant]
     Active Substance: LOPERAMIDE HYDROCHLORIDE
  13. LEVOTHYROXINE. [Concomitant]
     Active Substance: LEVOTHYROXINE
  14. INSULIN GLARGINE [Concomitant]
     Active Substance: INSULIN GLARGINE
  15. VITAMIN D2 [Concomitant]
     Active Substance: ERGOCALCIFEROL
  16. APIXABAN [Concomitant]
     Active Substance: APIXABAN
  17. CABOZANTINIB [Suspect]
     Active Substance: CABOZANTINIB
     Indication: HORMONE-REFRACTORY PROSTATE CANCER
     Dosage: 23/DEC/2020, RECEIVED MOST RECENT DOSE
     Route: 048
     Dates: start: 20180423
  18. NORCO [Concomitant]
     Active Substance: ACETAMINOPHEN\HYDROCODONE BITARTRATE
  19. MUCINEX [Concomitant]
     Active Substance: GUAIFENESIN
  20. AMOXICILLIN. [Concomitant]
     Active Substance: AMOXICILLIN

REACTIONS (1)
  - Myocardial infarction [Fatal]

NARRATIVE: CASE EVENT DATE: 20201224
